FAERS Safety Report 15947995 (Version 3)
Quarter: 2019Q3

REPORT INFORMATION
  Report Type: Spontaneous
  Country: US (occurrence: US)
  Receive Date: 20190211
  Receipt Date: 20190731
  Transmission Date: 20191004
  Serious: Yes (Other)
  Sender: FDA-Public Use
  Company Number: US-ASTRAZENECA-2019SE11526

PATIENT
  Age: 58 Year
  Sex: Male

DRUGS (46)
  1. NORVASC [Concomitant]
     Active Substance: AMLODIPINE BESYLATE
  2. LOMOTIL [Concomitant]
     Active Substance: ATROPINE SULFATE\DIPHENOXYLATE HYDROCHLORIDE
  3. FUROSEMIDE. [Concomitant]
     Active Substance: FUROSEMIDE
  4. TUMS [Concomitant]
     Active Substance: CALCIUM CARBONATE
  5. PEPTO-BISMOL [Concomitant]
     Active Substance: BISMUTH SUBSALICYLATE
  6. LOVENOX [Concomitant]
     Active Substance: ENOXAPARIN SODIUM
  7. ZOFRAN [Concomitant]
     Active Substance: ONDANSETRON HYDROCHLORIDE
  8. ACTOS [Concomitant]
     Active Substance: PIOGLITAZONE HYDROCHLORIDE
     Dates: start: 2012
  9. ZANTAC [Concomitant]
     Active Substance: RANITIDINE HYDROCHLORIDE
  10. TRAJENTA [Concomitant]
     Active Substance: LINAGLIPTIN
  11. OXYCODONE ACETAMINOPHEN [Concomitant]
     Active Substance: ACETAMINOPHEN\OXYCODONE HYDROCHLORIDE
     Dates: start: 2012
  12. IBUPROFEN. [Concomitant]
     Active Substance: IBUPROFEN
     Dates: start: 2015
  13. PROTONIX [Suspect]
     Active Substance: PANTOPRAZOLE SODIUM
     Indication: GASTROOESOPHAGEAL REFLUX DISEASE
     Dosage: GENERIC
     Route: 065
  14. LIPITOR [Concomitant]
     Active Substance: ATORVASTATIN CALCIUM
     Dates: start: 2011
  15. CLONIDINE. [Concomitant]
     Active Substance: CLONIDINE
  16. CARVEDILOL. [Concomitant]
     Active Substance: CARVEDILOL
     Dates: start: 2011, end: 2015
  17. GABAPENTIN. [Concomitant]
     Active Substance: GABAPENTIN
     Dates: start: 2011, end: 2013
  18. CEPHALEXIN. [Concomitant]
     Active Substance: CEPHALEXIN
  19. PROTONIX [Suspect]
     Active Substance: PANTOPRAZOLE SODIUM
     Indication: GASTROOESOPHAGEAL REFLUX DISEASE
     Route: 065
  20. TRADJENTA [Concomitant]
     Active Substance: LINAGLIPTIN
  21. RANITIDINE. [Concomitant]
     Active Substance: RANITIDINE
  22. AMIODARONE [Concomitant]
     Active Substance: AMIODARONE
  23. SIMVASTATIN. [Concomitant]
     Active Substance: SIMVASTATIN
     Dates: start: 2014
  24. ACARBOSE. [Concomitant]
     Active Substance: ACARBOSE
     Dates: start: 2017
  25. ACETAMINOPHEN. [Concomitant]
     Active Substance: ACETAMINOPHEN
     Dates: start: 2014
  26. AMOXICILLIN. [Concomitant]
     Active Substance: AMOXICILLIN
     Dates: start: 2013
  27. JANUVIA [Concomitant]
     Active Substance: SITAGLIPTIN PHOSPHATE
     Dates: start: 2012, end: 2014
  28. NEXIUM [Suspect]
     Active Substance: ESOMEPRAZOLE MAGNESIUM
     Indication: GASTROOESOPHAGEAL REFLUX DISEASE
     Dosage: GENERIC
     Route: 065
     Dates: start: 2015, end: 2018
  29. TYLENOL [Concomitant]
     Active Substance: ACETAMINOPHEN
  30. LISINOPRIL. [Concomitant]
     Active Substance: LISINOPRIL
  31. TAGAMET [Concomitant]
     Active Substance: CIMETIDINE
  32. ONDANSETRON [Concomitant]
     Active Substance: ONDANSETRON
     Dates: start: 2012
  33. NIFEDIPINE. [Concomitant]
     Active Substance: NIFEDIPINE
     Dates: start: 2012
  34. GLIPIZIDE. [Concomitant]
     Active Substance: GLIPIZIDE
     Dates: start: 2011, end: 2013
  35. FERROUS SULFATE. [Concomitant]
     Active Substance: FERROUS SULFATE
     Dates: start: 2011
  36. OMEPRAZOLE SODIUM [Suspect]
     Active Substance: OMEPRAZOLE SODIUM
     Indication: GASTROOESOPHAGEAL REFLUX DISEASE
     Route: 065
  37. TRAMADOL. [Concomitant]
     Active Substance: TRAMADOL
  38. ROLAIDS [Concomitant]
     Active Substance: CALCIUM CARBONATE\MAGNESIUM HYDROXIDE
  39. PEPCID AC [Concomitant]
     Active Substance: FAMOTIDINE
  40. PREDNISONE. [Concomitant]
     Active Substance: PREDNISONE
     Dates: start: 2017
  41. METFORMIN [Concomitant]
     Active Substance: METFORMIN HYDROCHLORIDE
     Dates: start: 2012
  42. CLONIDINE. [Concomitant]
     Active Substance: CLONIDINE
     Dates: start: 2011
  43. NEXIUM [Suspect]
     Active Substance: ESOMEPRAZOLE MAGNESIUM
     Indication: GASTROOESOPHAGEAL REFLUX DISEASE
     Route: 048
     Dates: start: 2007, end: 2015
  44. KAYEXALATE [Concomitant]
     Active Substance: SODIUM POLYSTYRENE SULFONATE
  45. AZITHROMYCIN ANHYDROUS. [Concomitant]
     Active Substance: AZITHROMYCIN ANHYDROUS
     Dates: start: 2011
  46. SERTRALINE [Concomitant]
     Active Substance: SERTRALINE HYDROCHLORIDE
     Dates: start: 2015

REACTIONS (5)
  - Rebound acid hypersecretion [Unknown]
  - Renal injury [Unknown]
  - Chronic kidney disease [Unknown]
  - Renal failure [Unknown]
  - Acute kidney injury [Not Recovered/Not Resolved]

NARRATIVE: CASE EVENT DATE: 2010
